FAERS Safety Report 8523471-8 (Version None)
Quarter: 2012Q3

REPORT INFORMATION
  Report Type: 
  Country: None (occurrence: None)
  Receive Date: 20120720
  Receipt Date: 20120712
  Transmission Date: 20120928
  Serious: Yes (Death, Hospitalization)
  Sender: FDA-Public Use
  Company Number: US-BAYER-2012-057376

PATIENT
  Age: 67 Year
  Sex: Female
  Weight: 77.551 kg

DRUGS (1)
  1. NEXAVAR [Suspect]
     Indication: HEPATIC CANCER STAGE IV
     Dosage: 200 MG, QD
     Route: 048
     Dates: start: 20110607

REACTIONS (2)
  - LUNG INFILTRATION [None]
  - SEPSIS [None]
